FAERS Safety Report 7482908-6 (Version None)
Quarter: 2011Q2

REPORT INFORMATION
  Report Type: 
  Country: None (occurrence: None)
  Receive Date: 20110516
  Receipt Date: 20110510
  Transmission Date: 20111010
  Serious: Yes (Hospitalization, Other)
  Sender: FDA-Public Use
  Company Number: NL-PFIZER INC-2011087500

PATIENT
  Age: 51 Year
  Sex: Male

DRUGS (4)
  1. INSULIN GLARGINE [Concomitant]
     Indication: DIABETES MELLITUS
  2. GLUCOVANCE [Concomitant]
     Indication: DIABETES MELLITUS
  3. INSULIN GLULISINE [Concomitant]
     Indication: DIABETES MELLITUS
     Dosage: 1 DF, UNK
  4. VARENICLINE TARTRATE [Suspect]
     Indication: SMOKING CESSATION THERAPY
     Dosage: UNK
     Dates: start: 20110404, end: 20110401

REACTIONS (6)
  - CORONARY ARTERY STENOSIS [None]
  - BLOOD GLUCOSE INCREASED [None]
  - CHEST PAIN [None]
  - BLOOD PRESSURE INCREASED [None]
  - PALPITATIONS [None]
  - DYSPNOEA [None]
